FAERS Safety Report 7448248-6 (Version None)
Quarter: 2011Q2

REPORT INFORMATION
  Report Type: 
  Country: None (occurrence: None)
  Receive Date: 20110429
  Receipt Date: 20100601
  Transmission Date: 20111010
  Serious: No
  Sender: FDA-Public Use
  Company Number: US-ASTRAZENECA-2010SE17590

PATIENT
  Age: 79 Year
  Sex: Female
  Weight: 84.4 kg

DRUGS (6)
  1. LIPITOR [Concomitant]
  2. PRILOSEC [Suspect]
     Indication: GASTROOESOPHAGEAL REFLUX DISEASE
     Route: 048
     Dates: start: 20100401
  3. GLUCOPHAGE [Concomitant]
     Indication: DIABETES MELLITUS
  4. THYROID MED [Concomitant]
     Indication: THYROID DISORDER
  5. NEXIUM [Suspect]
     Indication: GASTROOESOPHAGEAL REFLUX DISEASE
     Route: 048
     Dates: start: 20010101
  6. GLUCOTROL XL [Concomitant]
     Indication: DIABETES MELLITUS

REACTIONS (5)
  - DRUG EFFECT DECREASED [None]
  - THYROID DISORDER [None]
  - PAIN [None]
  - PAIN IN EXTREMITY [None]
  - HYPERTENSION [None]
